FAERS Safety Report 25253230 (Version 2)
Quarter: 2025Q2

REPORT INFORMATION
  Report Type: Spontaneous
  Country: US (occurrence: US)
  Receive Date: 20250430
  Receipt Date: 20250520
  Transmission Date: 20250716
  Serious: No
  Sender: RISING PHARMACEUTICALS
  Company Number: US-RISINGPHARMA-US-2025RISSPO00187

PATIENT
  Sex: Female

DRUGS (15)
  1. PHENYTOIN [Suspect]
     Active Substance: PHENYTOIN
     Indication: Seizure
     Route: 048
  2. PHENYTOIN [Suspect]
     Active Substance: PHENYTOIN
     Route: 048
     Dates: start: 20220929
  3. PHENYTOIN [Suspect]
     Active Substance: PHENYTOIN
     Route: 048
     Dates: start: 20230925
  4. PHENYTOIN [Suspect]
     Active Substance: PHENYTOIN
     Route: 048
     Dates: start: 20240423
  5. PHENYTOIN [Suspect]
     Active Substance: PHENYTOIN
     Route: 048
     Dates: start: 20241021
  6. PHENYTOIN [Suspect]
     Active Substance: PHENYTOIN
     Route: 048
  7. PHENYTOIN [Suspect]
     Active Substance: PHENYTOIN
     Route: 048
  8. PHENYTOIN [Suspect]
     Active Substance: PHENYTOIN
     Route: 048
  9. DILANTIN [Suspect]
     Active Substance: PHENYTOIN
     Indication: Seizure
     Dosage: QPM
     Route: 048
  10. DILANTIN [Suspect]
     Active Substance: PHENYTOIN
     Route: 048
     Dates: start: 20220929
  11. DILANTIN [Suspect]
     Active Substance: PHENYTOIN
     Route: 048
     Dates: start: 20230925
  12. DILANTIN [Suspect]
     Active Substance: PHENYTOIN
     Route: 048
     Dates: start: 20240423
  13. DILANTIN [Suspect]
     Active Substance: PHENYTOIN
     Route: 048
     Dates: start: 20241021
  14. DILANTIN [Suspect]
     Active Substance: PHENYTOIN
     Route: 048
  15. DILANTIN [Suspect]
     Active Substance: PHENYTOIN
     Route: 048

REACTIONS (8)
  - Musculoskeletal stiffness [Unknown]
  - Bruxism [Unknown]
  - Aura [Unknown]
  - Drug level below therapeutic [Unknown]
  - Eye disorder [Unknown]
  - Drug intolerance [Unknown]
  - Somnolence [Unknown]
  - Incorrect dose administered [Unknown]
